FAERS Safety Report 19058726 (Version 1)
Quarter: 2021Q1

REPORT INFORMATION
  Report Type: Spontaneous
  Country: BR (occurrence: BR)
  Receive Date: 20210325
  Receipt Date: 20210325
  Transmission Date: 20210420
  Serious: Yes (Disabling)
  Sender: FDA-Public Use
  Company Number: NVSC2021BR065125

PATIENT
  Sex: Male

DRUGS (3)
  1. HYLO GEL [Concomitant]
     Indication: DRY EYE
     Dosage: 1 DRP, QD (6 OR 8 MONTHS AGO)
     Route: 065
  2. MAXIDEX [Suspect]
     Active Substance: DEXAMETHASONE
     Indication: PRODUCT USED FOR UNKNOWN INDICATION
     Dosage: UNK
     Route: 065
  3. LACRIMA PLUS (TEARS NATURALE II) [Suspect]
     Active Substance: DEXTRAN 70\HYPROMELLOSES
     Indication: PRODUCT USED FOR UNKNOWN INDICATION
     Dosage: UNK (MORE THAN 2YEARS AGO)
     Route: 065

REACTIONS (5)
  - Drug ineffective [Unknown]
  - Blindness [Unknown]
  - Vision blurred [Unknown]
  - Eye infection [Unknown]
  - Neurofibromatosis [Unknown]
